FAERS Safety Report 5645093-9 (Version None)
Quarter: 2008Q1

REPORT INFORMATION
  Report Type: 
  Country: None (occurrence: None)
  Receive Date: 20080229
  Receipt Date: 20080215
  Transmission Date: 20080703
  Serious: Yes (Life-Threatening)
  Sender: FDA-Public Use
  Company Number: DE-GENENTECH-256516

PATIENT
  Sex: Female
  Weight: 68 kg

DRUGS (3)
  1. AVASTIN [Suspect]
     Indication: BREAST CANCER METASTATIC
     Dosage: 1020 MG, UNK
     Route: 042
     Dates: start: 20070817
  2. TAXOL [Suspect]
     Indication: BREAST CANCER METASTATIC
     Dosage: 310 MG, UNK
     Route: 042
     Dates: start: 20070801
  3. IBANDRONATE [Concomitant]
     Indication: DRUG USE FOR UNKNOWN INDICATION
     Dates: start: 20070817

REACTIONS (2)
  - JAUNDICE [None]
  - LIVER FUNCTION TEST ABNORMAL [None]
